FAERS Safety Report 7819019-3 (Version None)
Quarter: 2011Q4

REPORT INFORMATION
  Report Type: 
  Country: None (occurrence: None)
  Receive Date: 20111012
  Receipt Date: 20110927
  Transmission Date: 20120403
  Serious: Yes (Other)
  Sender: FDA-Public Use
  Company Number: 2011MA014759

PATIENT
  Age: 47 Year
  Sex: Female

DRUGS (1)
  1. CLOTRIMAZOLE [Suspect]
     Indication: VAGINAL DISCHARGE
     Dosage: VAGINAL
     Route: 067
     Dates: start: 20110901, end: 20110901

REACTIONS (2)
  - UTERINE CYST [None]
  - THYROID NEOPLASM [None]
